FAERS Safety Report 5113641-3 (Version None)
Quarter: 2006Q3

REPORT INFORMATION
  Report Type: 
  Country: None (occurrence: None)
  Receive Date: 20060925
  Receipt Date: 20060913
  Transmission Date: 20061208
  Serious: Yes (Death, Other)
  Sender: FDA-Public Use
  Company Number: PHBS2006BR14162

PATIENT
  Age: 78 Year
  Sex: Male

DRUGS (3)
  1. CHEMOTHERAPEUTICS,OTHER [Concomitant]
     Route: 065
  2. ZOMETA [Suspect]
     Indication: METASTASES TO BONE
     Dosage: 4 MG, EVERY 28 DAYS
     Dates: start: 20020101, end: 20050101
  3. AREDIA [Suspect]
     Indication: METASTASES TO BONE
     Dates: start: 20000101, end: 20020101

REACTIONS (5)
  - ECONOMIC PROBLEM [None]
  - OSTEONECROSIS [None]
  - POOR PERSONAL HYGIENE [None]
  - RESPIRATORY FAILURE [None]
  - SOCIAL PROBLEM [None]
